FAERS Safety Report 7802544-9 (Version None)
Quarter: 2011Q4

REPORT INFORMATION
  Report Type: 
  Country: None (occurrence: None)
  Receive Date: 20111007
  Receipt Date: 20110914
  Transmission Date: 20120403
  Serious: Yes (Other)
  Sender: FDA-Public Use
  Company Number: JP-PFIZER INC-2011194268

PATIENT
  Age: 68 Year
  Sex: Male
  Weight: 57.5 kg

DRUGS (33)
  1. PREDNISOLONE [Suspect]
     Indication: ADULT T-CELL LYMPHOMA/LEUKAEMIA
     Dosage: 40 MG/M2 X 1/4 WEEK
     Route: 048
     Dates: start: 20110425, end: 20110705
  2. FILDESIN [Suspect]
     Indication: ADULT T-CELL LYMPHOMA/LEUKAEMIA
     Dosage: 2.4 MG/M2 X 1/4 WEEK
     Route: 041
     Dates: start: 20110509, end: 20110728
  3. PARAPLATIN [Suspect]
     Indication: ADULT T-CELL LYMPHOMA/LEUKAEMIA
     Dosage: 250 MG/M2 X 1/4 WEEK
     Route: 041
     Dates: start: 20110509, end: 20110728
  4. DIFLUCAN [Concomitant]
     Dosage: 100 MG, UNK
     Route: 048
     Dates: start: 20110425
  5. GLUCONSAN K [Concomitant]
     Dosage: 24 MEQ, UNK
     Route: 048
     Dates: start: 20110817
  6. DOXORUBICIN HYDROCHLORIDE [Suspect]
     Indication: ADULT T-CELL LYMPHOMA/LEUKAEMIA
     Dosage: 40 MG/M2 X 1/4WEEK
     Route: 041
     Dates: start: 20110425, end: 20110705
  7. MAGMITT [Concomitant]
     Dosage: 990 MG, UNK
     Route: 048
     Dates: start: 20110425
  8. PURSENNID [Concomitant]
     Dosage: 24 MG, UNK
     Route: 048
     Dates: start: 20110705
  9. EPINASTINE HYDROCHLORIDE [Concomitant]
     Dosage: 20 MG, UNK
     Route: 048
     Dates: start: 20110814
  10. MYSER [Concomitant]
     Dosage: UNK
     Dates: start: 20110624
  11. METHOTREXATE SODIUM [Suspect]
     Indication: ADULT T-CELL LYMPHOMA/LEUKAEMIA
     Dosage: 15 MG X 1/8 WEEK
     Route: 037
     Dates: start: 20110531
  12. DOXORUBICIN HYDROCHLORIDE [Suspect]
     Dosage: 30 MG/M2 X 1/4WEEK
     Route: 041
     Dates: start: 20110502, end: 20110712
  13. CYCLOSPORINE [Suspect]
     Indication: ADULT T-CELL LYMPHOMA/LEUKAEMIA
     Dosage: 350 MG/M2 X 1/4 WEEK
     Route: 041
     Dates: start: 20110425, end: 20110705
  14. PREDNISOLONE [Suspect]
     Dosage: 40 MG/M2 X 1/4 WEEK
     Route: 048
     Dates: start: 20110509, end: 20110728
  15. ETOPOSIDE [Suspect]
     Indication: ADULT T-CELL LYMPHOMA/LEUKAEMIA
     Dosage: 100 MG/M2 X 1/4 WEEK
     Route: 041
     Dates: start: 20110509, end: 20110728
  16. TARGOCID [Concomitant]
     Dosage: 400 MG, UNK
     Route: 041
     Dates: start: 20110804, end: 20110815
  17. HICEE [Concomitant]
     Dosage: 1500 MG, UNK
     Route: 048
     Dates: start: 20110808
  18. VINCRISTINE SULFATE [Suspect]
     Indication: ADULT T-CELL LYMPHOMA/LEUKAEMIA
     Dosage: 1 MG/M2 X 1/4 WEEK
     Route: 041
     Dates: start: 20110425, end: 20110705
  19. ASPIRIN [Concomitant]
     Dosage: 100 MG, UNK
     Route: 048
     Dates: start: 20110524
  20. KETOPROFEN [Concomitant]
     Dosage: UNK
     Dates: start: 20110807
  21. PREDNISOLONE [Suspect]
     Dosage: 40 MG/M2 X 1/4 WEEK
     Route: 048
     Dates: start: 20110502, end: 20110712
  22. ADONA [Concomitant]
     Dosage: 90 MG, UNK
     Route: 048
     Dates: start: 20110808
  23. CYTARABINE [Suspect]
     Indication: ADULT T-CELL LYMPHOMA/LEUKAEMIA
     Dosage: 40 MG X 1/8 WEEK
     Route: 037
     Dates: start: 20110531
  24. OMEPRAZOLE [Concomitant]
     Dosage: 20 MG, UNK
     Route: 048
     Dates: start: 20110425
  25. SULFAMETHOXAZOLE [Concomitant]
     Dosage: 1 DF
     Route: 048
     Dates: start: 20110425
  26. MAXIPIME [Concomitant]
     Dosage: 4 G, UNK
     Route: 041
     Dates: start: 20110804, end: 20110811
  27. LENDORMIN [Concomitant]
     Dosage: 0.25 MG, UNK
     Route: 048
     Dates: start: 20110425
  28. POSTERISAN [Concomitant]
     Dosage: UNK
     Dates: start: 20110517
  29. SLOW-K [Concomitant]
     Dosage: 3600 MG, UNK
     Route: 048
     Dates: start: 20110815
  30. KW-0761 [Suspect]
     Indication: ADULT T-CELL LYMPHOMA/LEUKAEMIA
     Dosage: 1.0 MG/KG X 1/2 WEEK
     Route: 041
     Dates: start: 20110426, end: 20110727
  31. RANIMUSTINE [Suspect]
     Indication: ADULT T-CELL LYMPHOMA/LEUKAEMIA
     Dosage: 60 MG/M2 X 1/4 WEEK
     Route: 041
     Dates: start: 20110502, end: 20110712
  32. PREDNISOLONE SODIUM SUCCINATE INJ [Suspect]
     Indication: ADULT T-CELL LYMPHOMA/LEUKAEMIA
     Dosage: 10 MG X 1/8 WEEK
     Route: 037
     Dates: start: 20110531
  33. PREDNISOLONE [Suspect]
     Indication: RASH
     Dosage: 15 MG, UNK
     Route: 048
     Dates: start: 20110818

REACTIONS (1)
  - ENCEPHALITIS VIRAL [None]
